FAERS Safety Report 8145329-9 (Version None)
Quarter: 2012Q1

REPORT INFORMATION
  Report Type: 
  Country: None (occurrence: None)
  Receive Date: 20120103
  Receipt Date: 20110926
  Transmission Date: 20120608
  Serious: No
  Sender: FDA-Public Use
  Company Number: AE-2011-001826

PATIENT
  Age: 56 Year
  Sex: Male

DRUGS (7)
  1. HYDROCHLOROTHIAZIDE [Concomitant]
  2. RIBAVIRIN [Concomitant]
  3. INCIVEK [Suspect]
     Dosage: 2250 MG (750 MG, 3 IN 1 D), ORAL
     Route: 048
     Dates: start: 20110919
  4. LEVETIRACETAM [Concomitant]
  5. PEGASYS [Concomitant]
  6. REQUIP XL [Concomitant]
  7. AMLODIPINE [Concomitant]

REACTIONS (1)
  - URTICARIA [None]
